FAERS Safety Report 5541159-2 (Version None)
Quarter: 2007Q4

REPORT INFORMATION
  Report Type: 
  Country: None (occurrence: None)
  Receive Date: 20071209
  Receipt Date: 20061222
  Transmission Date: 20080405
  Serious: No
  Sender: FDA-Public Use
  Company Number: US-AMGEN-KDL204721

PATIENT
  Sex: Female

DRUGS (1)
  1. ENBREL [Suspect]
     Indication: RHEUMATOID ARTHRITIS
     Route: 058

REACTIONS (8)
  - BACK PAIN [None]
  - DISCOMFORT [None]
  - FEELING JITTERY [None]
  - MIDDLE EAR DISORDER [None]
  - MUSCLE TWITCHING [None]
  - RESPIRATORY TRACT INFECTION [None]
  - SWELLING [None]
  - WEIGHT INCREASED [None]
